FAERS Safety Report 14450505 (Version 2)
Quarter: 2018Q1

REPORT INFORMATION
  Report Type: Spontaneous
  Country: CN (occurrence: CN)
  Receive Date: 20180129
  Receipt Date: 20180212
  Transmission Date: 20180509
  Serious: Yes (Death, Other)
  Sender: FDA-Public Use
  Company Number: CN-CIPLA LTD.-2018CN02292

PATIENT

DRUGS (25)
  1. VINDESINE [Suspect]
     Active Substance: VINDESINE
     Dosage: 3 MG/M2, CYCLICAL
     Route: 041
     Dates: start: 20150329
  2. VINDESINE [Suspect]
     Active Substance: VINDESINE
     Dosage: 3 MG/M2, CYCLICAL
     Route: 041
     Dates: start: 20150508
  3. THEPRUBICINE [Suspect]
     Active Substance: PIRARUBICIN
     Indication: NECROSIS
     Dosage: 20 MG/M2, CYCLICALLY
     Route: 041
     Dates: start: 20150306
  4. CARBOPLATIN. [Suspect]
     Active Substance: CARBOPLATIN
     Dosage: 150 MG/M2, CYCLICAL
     Route: 041
     Dates: start: 20150510
  5. ETOPOSIDE. [Suspect]
     Active Substance: ETOPOSIDE
     Dosage: 100 MG/M2, CYCLICAL
     Route: 041
     Dates: start: 20150508
  6. IFOSFAMIDE. [Suspect]
     Active Substance: IFOSFAMIDE
     Indication: METASTASES TO PLEURA
     Dosage: UNK, CYCLICAL
     Route: 041
     Dates: start: 20150331
  7. TOPOTECAN [Suspect]
     Active Substance: TOPOTECAN HYDROCHLORIDE
     Indication: METASTASES TO LUNG
     Dosage: UNK, CYCLICALLY
     Route: 041
     Dates: start: 20150611
  8. TOPOTECAN [Suspect]
     Active Substance: TOPOTECAN HYDROCHLORIDE
     Dosage: UNK, CYCLICALLY
     Route: 041
     Dates: start: 20150614
  9. VINDESINE [Suspect]
     Active Substance: VINDESINE
     Dosage: 3 MG/M2, CYCLICAL
     Route: 041
     Dates: start: 2015
  10. THEPRUBICINE [Suspect]
     Active Substance: PIRARUBICIN
     Dosage: 20 MG/M2, CYCLICALLY
     Route: 041
     Dates: start: 20150511
  11. IFOSFAMIDE. [Suspect]
     Active Substance: IFOSFAMIDE
     Dosage: UNK, CYCLICAL
     Route: 041
     Dates: start: 20150614
  12. VINDESINE [Suspect]
     Active Substance: VINDESINE
     Dosage: 3 MG/M2, CYCLICAL
     Route: 041
     Dates: start: 201506
  13. GEMCITABINE [Suspect]
     Active Substance: GEMCITABINE\GEMCITABINE HYDROCHLORIDE
     Indication: NECROSIS
     Dosage: 1250 MG/M2, CYCLICAL
     Route: 041
  14. TOPOTECAN [Suspect]
     Active Substance: TOPOTECAN HYDROCHLORIDE
     Dosage: UNK, CYCLICALLY
     Route: 041
     Dates: start: 20150612
  15. VINDESINE [Suspect]
     Active Substance: VINDESINE
     Dosage: 3 MG/M2, CYCLICAL
     Route: 041
     Dates: start: 20150612
  16. VINDESINE [Suspect]
     Active Substance: VINDESINE
     Dosage: 3 MG/M2, CYCLICAL
     Route: 041
     Dates: start: 2015
  17. CARBOPLATIN. [Suspect]
     Active Substance: CARBOPLATIN
     Indication: NEUROBLASTOMA
     Dosage: 150 MG/M2, CYCLICAL
     Route: 041
     Dates: start: 20150306
  18. ETOPOSIDE. [Suspect]
     Active Substance: ETOPOSIDE
     Indication: NECROSIS
     Dosage: 100 MG/M2, CYCLICAL
     Route: 041
     Dates: start: 20150331
  19. VINDESINE [Suspect]
     Active Substance: VINDESINE
     Indication: NECROSIS
     Dosage: 3 MG/M2, CYCLICAL
     Route: 041
     Dates: start: 20150306
  20. VINDESINE [Suspect]
     Active Substance: VINDESINE
     Dosage: 3 MG/M2, CYCLICAL
     Route: 041
     Dates: start: 20150505
  21. VINDESINE [Suspect]
     Active Substance: VINDESINE
     Dosage: 3 MG/M2, CYCLICAL
     Route: 041
     Dates: start: 20150611
  22. VINDESINE [Suspect]
     Active Substance: VINDESINE
     Dosage: UNK, WEEKLY
     Route: 065
  23. CARBOPLATIN. [Suspect]
     Active Substance: CARBOPLATIN
     Dosage: 150 MG/M2, CYCLICAL
     Route: 041
     Dates: start: 20150511
  24. ETOPOSIDE. [Suspect]
     Active Substance: ETOPOSIDE
     Dosage: 100 MG/M2, CYCLICAL
     Route: 041
     Dates: start: 20150614
  25. THEPRUBICINE [Suspect]
     Active Substance: PIRARUBICIN
     Dosage: 20 MG/M2, CYCLICALLY
     Route: 041
     Dates: start: 20150510

REACTIONS (6)
  - Bone marrow failure [Unknown]
  - Death [Fatal]
  - Drug resistance [Unknown]
  - Neuroblastoma [Unknown]
  - Metastases to lung [Unknown]
  - Respiratory tract inflammation [Unknown]

NARRATIVE: CASE EVENT DATE: 2015
